FAERS Safety Report 22276359 (Version 1)
Quarter: 2023Q2

REPORT INFORMATION
  Report Type: Spontaneous
  Country: CN (occurrence: CN)
  Receive Date: 20230503
  Receipt Date: 20230503
  Transmission Date: 20230722
  Serious: Yes (Death)
  Sender: FDA-Public Use
  Company Number: None

PATIENT
  Age: 23 Year
  Sex: Female

DRUGS (11)
  1. ACYCLOVIR [Suspect]
     Active Substance: ACYCLOVIR
     Indication: Herpes simplex
  2. ACYCLOVIR [Suspect]
     Active Substance: ACYCLOVIR
     Indication: Mycoplasma infection
  3. LEVOFLOXACIN [Concomitant]
     Active Substance: LEVOFLOXACIN
     Indication: Mycoplasma infection
  4. LEVOFLOXACIN [Concomitant]
     Active Substance: LEVOFLOXACIN
     Indication: Herpes simplex
  5. CEFTAZIDIME [Concomitant]
     Active Substance: CEFTAZIDIME
     Indication: Infection
  6. AVIBACTAM [Concomitant]
     Active Substance: AVIBACTAM
     Indication: Infection
  7. VORICONAZOLE [Concomitant]
     Active Substance: VORICONAZOLE
     Indication: Infection
  8. AMIKACIN [Concomitant]
     Active Substance: AMIKACIN
     Indication: Infection
  9. LEVETIRACETAM [Concomitant]
     Active Substance: LEVETIRACETAM
     Indication: Epilepsy
  10. VALPROATE SODIUM [Concomitant]
     Active Substance: VALPROATE SODIUM
     Indication: Epilepsy
  11. MANNITOL [Concomitant]
     Active Substance: MANNITOL
     Indication: Product used for unknown indication

REACTIONS (1)
  - Drug ineffective [Fatal]
